FAERS Safety Report 7504582-2 (Version None)
Quarter: 2011Q2

REPORT INFORMATION
  Report Type: 
  Country: None (occurrence: None)
  Receive Date: 20110525
  Receipt Date: 20110524
  Transmission Date: 20111010
  Serious: Yes (Hospitalization, Other)
  Sender: FDA-Public Use
  Company Number: JP-ABBOTT-10P-087-0693467-00

PATIENT
  Age: 32 Year
  Sex: Male

DRUGS (16)
  1. CLARITHROMYCIN [Concomitant]
     Indication: PROPHYLAXIS
  2. PENTAMIDINE ISETHIONATE [Concomitant]
     Indication: PNEUMOCYSTIS JIROVECI PNEUMONIA
     Route: 055
     Dates: start: 20090602
  3. CLARITHROMYCIN [Concomitant]
     Indication: MYCOBACTERIUM AVIUM COMPLEX INFECTION
     Dates: start: 20090516
  4. ETHAMBUTOL HYDROCHLORIDE [Concomitant]
     Indication: MYCOBACTERIUM AVIUM COMPLEX INFECTION
     Dates: start: 20090516
  5. EPZICOM [Concomitant]
     Indication: HIV INFECTION
     Route: 048
     Dates: start: 20090213, end: 20090216
  6. INDAPAMIDE [Concomitant]
     Dates: start: 20090814
  7. TRUVADA [Suspect]
     Indication: HIV INFECTION
     Route: 048
     Dates: start: 20090205, end: 20090209
  8. INDAPAMIDE [Concomitant]
     Indication: HYPERTENSION
     Dates: start: 20090717, end: 20090813
  9. RIFABUTIN [Concomitant]
     Indication: MYCOBACTERIUM AVIUM COMPLEX INFECTION
     Route: 048
     Dates: start: 20090516
  10. RIFABUTIN [Concomitant]
     Indication: PROPHYLAXIS
  11. ISENTRESS [Concomitant]
     Indication: HIV INFECTION
     Dosage: 800 MG DAILY
     Route: 048
     Dates: start: 20090430
  12. NIFEDIPINE [Concomitant]
     Indication: HYPERTENSION
     Dates: start: 20091218
  13. RITONAVIR [Suspect]
     Indication: HIV INFECTION
     Dosage: 200 MG DAILY
     Route: 048
     Dates: start: 20090424
  14. KALETRA [Suspect]
     Indication: HIV INFECTION
     Dosage: 4 TABLETS DAILY
     Route: 048
     Dates: start: 20090210, end: 20090220
  15. PREZISTA [Suspect]
     Indication: HIV INFECTION
     Dosage: 1200 MG DAILY
     Route: 048
     Dates: start: 20090424
  16. PENTAMIDINE ISETHIONATE [Concomitant]
     Indication: PROPHYLAXIS

REACTIONS (8)
  - BLOOD URIC ACID INCREASED [None]
  - RASH [None]
  - GASTRIC ULCER [None]
  - ATYPICAL MYCOBACTERIAL INFECTION [None]
  - LYMPHADENOPATHY [None]
  - PYREXIA [None]
  - BLOOD TRIGLYCERIDES INCREASED [None]
  - CYTOMEGALOVIRUS CHORIORETINITIS [None]
